FAERS Safety Report 21081181 (Version 1)
Quarter: 2022Q3

REPORT INFORMATION
  Report Type: Spontaneous
  Country: US (occurrence: None)
  Receive Date: 20220713
  Receipt Date: 20220713
  Transmission Date: 20221026
  Serious: Yes (Hospitalization)
  Sender: FDA-Public Use
  Company Number: None

PATIENT
  Age: 49 Year
  Sex: Female
  Weight: 65.2 kg

DRUGS (7)
  1. BEBTELOVIMAB [Suspect]
     Active Substance: BEBTELOVIMAB
     Indication: COVID-19
     Dosage: OTHER FREQUENCY : ONCE;?
     Route: 040
     Dates: start: 20220704, end: 20220704
  2. ACETAMINOPHEN [Concomitant]
     Active Substance: ACETAMINOPHEN
  3. FLUOXETINE HYDROCHLORIDE [Concomitant]
     Active Substance: FLUOXETINE HYDROCHLORIDE
  4. INSULIN GLARGINE [Concomitant]
     Active Substance: INSULIN GLARGINE
  5. METFORMIN [Concomitant]
     Active Substance: METFORMIN HYDROCHLORIDE
  6. LINAGLIPTIN [Concomitant]
     Active Substance: LINAGLIPTIN
  7. liraglutide 18 mg/3mL [Concomitant]

REACTIONS (7)
  - Pyelonephritis [None]
  - Sepsis [None]
  - Gastroenteritis [None]
  - Urethral obstruction [None]
  - Ureterolithiasis [None]
  - Nephrolithiasis [None]
  - Escherichia bacteraemia [None]

NARRATIVE: CASE EVENT DATE: 20220706
